FAERS Safety Report 8021780-2 (Version None)
Quarter: 2012Q1

REPORT INFORMATION
  Report Type: 
  Country: None (occurrence: None)
  Receive Date: 20120104
  Receipt Date: 20111227
  Transmission Date: 20120608
  Serious: Yes (Other)
  Sender: FDA-Public Use
  Company Number: US-ASTRAZENECA-2010SE54507

PATIENT
  Age: 84 Year
  Sex: Female

DRUGS (2)
  1. CRESTOR [Suspect]
     Route: 048
  2. NEXIUM [Suspect]
     Route: 048

REACTIONS (9)
  - CARDIAC DISORDER [None]
  - MUSCULOSKELETAL DISCOMFORT [None]
  - DRUG DOSE OMISSION [None]
  - CATARACT [None]
  - ARTHRITIS [None]
  - THROAT IRRITATION [None]
  - NEUROPATHY PERIPHERAL [None]
  - FALL [None]
  - OESOPHAGEAL PAIN [None]
